FAERS Safety Report 8900102 (Version 1)
Quarter: 2012Q4

REPORT INFORMATION
  Report Type: 
  Country: US (occurrence: US)
  Receive Date: 20121108
  Receipt Date: 20121108
  Transmission Date: 20130627
  Serious: No
  Sender: FDA-Public Use
  Company Number: US-AMGEN-USASP2012037319

PATIENT
  Age: 46 Year
  Sex: Female

DRUGS (3)
  1. ENBREL [Suspect]
     Indication: PRODUCT USED FOR UNKNOWN INDICATION
     Dosage: 50 mg, 2 times/wk
     Route: 058
  2. HYDROCHLOROTH [Concomitant]
     Dosage: 12.5 mg, UNK
  3. SINGULAIR [Concomitant]
     Dosage: 5 mg, UNK

REACTIONS (1)
  - Ear disorder [Unknown]
